FAERS Safety Report 12717337 (Version 2)
Quarter: 2016Q3

REPORT INFORMATION
  Report Type: Report from Study
  Country: US (occurrence: US)
  Receive Date: 20160906
  Receipt Date: 20160927
  Transmission Date: 20161109
  Serious: Yes (Hospitalization, Other)
  Sender: FDA-Public Use
  Company Number: US-ABBVIE-16K-163-1716333-00

PATIENT
  Age: 16 Year
  Sex: Female

DRUGS (5)
  1. HUMIRA [Suspect]
     Active Substance: ADALIMUMAB
     Indication: CROHN^S DISEASE
     Dosage: LOADING DOSE
     Route: 058
     Dates: start: 201501, end: 201501
  2. HUMIRA [Suspect]
     Active Substance: ADALIMUMAB
     Dosage: LOADING DOSE, TWO WEEKS AFTER 160 MG DOSE
     Route: 058
     Dates: start: 2015, end: 2015
  3. HUMIRA [Suspect]
     Active Substance: ADALIMUMAB
     Dosage: FOUR WEEKS AFTER 160 MG DOSE
     Route: 058
     Dates: start: 2015, end: 201509
  4. HUMIRA [Suspect]
     Active Substance: ADALIMUMAB
     Route: 058
     Dates: start: 201509, end: 2016
  5. HUMIRA [Suspect]
     Active Substance: ADALIMUMAB
     Route: 058
     Dates: start: 201608

REACTIONS (6)
  - Large intestinal ulcer [Recovered/Resolved]
  - Crohn^s disease [Recovered/Resolved]
  - Treatment noncompliance [Unknown]
  - Crohn^s disease [Recovered/Resolved]
  - Crohn^s disease [Recovered/Resolved]
  - Drug level decreased [Unknown]

NARRATIVE: CASE EVENT DATE: 201509
